FAERS Safety Report 4455110-X (Version None)
Quarter: 2004Q3

REPORT INFORMATION
  Report Type: 
  Country: None (occurrence: None)
  Receive Date: 20040917
  Receipt Date: 20040901
  Transmission Date: 20050211
  Serious: Yes (Other)
  Sender: FDA-Public Use
  Company Number: USA040977162

PATIENT
  Age: 58 Year
  Sex: Male

DRUGS (6)
  1. HUMULIN L [Suspect]
     Indication: DIABETES MELLITUS INSULIN-DEPENDENT
     Dosage: 58 U DAY
  2. HUMULIN R [Suspect]
     Indication: DIABETES MELLITUS INSULIN-DEPENDENT
  3. ILENTIN-PORK LENTE INSULIN (INSULIN, ANIMAL) [Suspect]
     Indication: DIABETES MELLITUS INSULIN-DEPENDENT
     Dates: start: 19880101
  4. ILENTIN-PORK REGULAR INSULIN (INSULIN, ANIMAL) [Suspect]
     Indication: DIABETES MELLITUS INSULIN-DEPENDENT
     Dates: start: 19880101
  5. NPH ILETIN I (BEEF-PORK) [Suspect]
     Indication: DIABETES MELLITUS INSULIN-DEPENDENT
     Dates: end: 19560101
  6. ILENTIN-INSULIN-ANIMAL (UNKNOWN FORMULATION) (INSULI [Suspect]
     Indication: DIABETES MELLITUS INSULIN-DEPENDENT
     Dates: end: 19810101

REACTIONS (8)
  - AMPUTATION [None]
  - ANGIOPATHY [None]
  - BLINDNESS UNILATERAL [None]
  - BLOOD GLUCOSE DECREASED [None]
  - BLOOD GLUCOSE FLUCTUATION [None]
  - DRUG EFFECT DECREASED [None]
  - LOSS OF CONSCIOUSNESS [None]
  - RETINAL DISORDER [None]
